FAERS Safety Report 6271925-X (Version None)
Quarter: 2009Q3

REPORT INFORMATION
  Report Type: 
  Country: None (occurrence: None)
  Receive Date: 20090717
  Receipt Date: 20090709
  Transmission Date: 20100115
  Serious: Yes (Other)
  Sender: FDA-Public Use
  Company Number: AU-NOVOPROD-289247

PATIENT
  Sex: Male
  Weight: 69.9 kg

DRUGS (16)
  1. NOVOLOG [Suspect]
     Indication: TYPE 2 DIABETES MELLITUS
     Dosage: 14 IU, QD EVENING DOSE
     Route: 058
     Dates: start: 20081110
  2. MIXTARD HUMAN 70/30 [Suspect]
     Indication: TYPE 2 DIABETES MELLITUS
     Dosage: 30 IU, QD IN THE MORNING
     Route: 058
  3. COUMADIN [Concomitant]
     Dosage: 6 MG, QD
     Route: 048
  4. FORMET [Concomitant]
     Dosage: 1000 MG, QD
     Route: 048
  5. CARTIA                             /00002701/ [Concomitant]
     Dosage: 1 TABL. 3 TIMES/ WEEK
     Route: 048
  6. LEVOTHYROXINE SODIUM [Concomitant]
     Dosage: 150 MG, QD
     Route: 048
  7. UREX                               /00032601/ [Concomitant]
     Dosage: 20 MG, QD
     Route: 048
  8. LANOXIN [Concomitant]
     Dosage: 62.5 UNK, QD
     Route: 048
  9. FIBSOL [Concomitant]
     Dosage: AT NIGHT
     Route: 048
  10. LIPEX                              /00848101/ [Concomitant]
     Dosage: 40 MG, QD
     Route: 048
  11. NITROLINGUAL PUMPSPRAY [Concomitant]
     Dosage: 400 MCG
  12. VENTOLIN [Concomitant]
     Dosage: WHEN REQUIRED
     Route: 048
  13. BIOGLAN [Concomitant]
     Dosage: HALF A TABLET DAILY
     Route: 048
  14. OROXINE [Concomitant]
     Dosage: 50 MCG 1 TABLET MONDAY - FRIDAY
  15. OROXINE [Concomitant]
     Dosage: 100 MCG DAILY
  16. ZESTRIL [Concomitant]
     Dosage: 20 MG, QD

REACTIONS (1)
  - CHRONIC LYMPHOCYTIC LEUKAEMIA [None]
